FAERS Safety Report 25302451 (Version 4)
Quarter: 2025Q4

REPORT INFORMATION
  Report Type: Spontaneous
  Country: EU (occurrence: EU)
  Receive Date: 20250512
  Receipt Date: 20251013
  Transmission Date: 20260117
  Serious: Yes (Hospitalization, Other)
  Sender: MYLAN
  Company Number: None

PATIENT
  Age: 52 Year
  Sex: Male

DRUGS (24)
  1. ZOLPIDEM [Suspect]
     Active Substance: ZOLPIDEM TARTRATE
     Indication: Product used for unknown indication
     Dosage: UNK (LARGE QUANTITY)
  2. ZOLPIDEM [Suspect]
     Active Substance: ZOLPIDEM TARTRATE
     Dosage: UNK (LARGE QUANTITY)
     Route: 048
  3. ZOLPIDEM [Suspect]
     Active Substance: ZOLPIDEM TARTRATE
     Dosage: UNK (LARGE QUANTITY)
     Route: 048
  4. ZOLPIDEM [Suspect]
     Active Substance: ZOLPIDEM TARTRATE
     Dosage: UNK (LARGE QUANTITY)
  5. PREGABALIN [Suspect]
     Active Substance: PREGABALIN
     Indication: Product used for unknown indication
     Dosage: UNK
  6. PREGABALIN [Suspect]
     Active Substance: PREGABALIN
     Dosage: UNK
     Route: 065
  7. PREGABALIN [Suspect]
     Active Substance: PREGABALIN
     Dosage: UNK
     Route: 065
  8. PREGABALIN [Suspect]
     Active Substance: PREGABALIN
     Dosage: UNK
  9. COCAINE [Suspect]
     Active Substance: COCAINE
     Indication: Product used for unknown indication
     Dosage: UNK UNK, QD (3/4 GRAMS EVERY DAY)
     Dates: start: 2023
  10. COCAINE [Suspect]
     Active Substance: COCAINE
     Dosage: UNK UNK, QD (3/4 GRAMS EVERY DAY)
     Route: 065
     Dates: start: 2023
  11. COCAINE [Suspect]
     Active Substance: COCAINE
     Dosage: UNK UNK, QD (3/4 GRAMS EVERY DAY)
     Route: 065
     Dates: start: 2023
  12. COCAINE [Suspect]
     Active Substance: COCAINE
     Dosage: UNK UNK, QD (3/4 GRAMS EVERY DAY)
     Dates: start: 2023
  13. VALIUM [Suspect]
     Active Substance: DIAZEPAM
     Indication: Product used for unknown indication
     Dosage: UNK
  14. VALIUM [Suspect]
     Active Substance: DIAZEPAM
     Dosage: UNK
     Route: 048
  15. VALIUM [Suspect]
     Active Substance: DIAZEPAM
     Dosage: UNK
     Route: 048
  16. VALIUM [Suspect]
     Active Substance: DIAZEPAM
     Dosage: UNK
  17. RIVOTRIL [Suspect]
     Active Substance: CLONAZEPAM
     Indication: Product used for unknown indication
     Dosage: 2 DOSAGE FORM, QD (2 TABLETS/DAY)
  18. RIVOTRIL [Suspect]
     Active Substance: CLONAZEPAM
     Dosage: 2 DOSAGE FORM, QD (2 TABLETS/DAY)
     Route: 048
  19. RIVOTRIL [Suspect]
     Active Substance: CLONAZEPAM
     Dosage: 2 DOSAGE FORM, QD (2 TABLETS/DAY)
     Route: 048
  20. RIVOTRIL [Suspect]
     Active Substance: CLONAZEPAM
     Dosage: 2 DOSAGE FORM, QD (2 TABLETS/DAY)
  21. OXYBATE [Suspect]
     Active Substance: OXYBATE
     Indication: Product used for unknown indication
     Dosage: 1.5 GRAM, QH,3 TIMES A WEEK, ALL EVENING
  22. OXYBATE [Suspect]
     Active Substance: OXYBATE
     Dosage: 1.5 GRAM, QH,3 TIMES A WEEK, ALL EVENING
     Route: 065
  23. OXYBATE [Suspect]
     Active Substance: OXYBATE
     Dosage: 1.5 GRAM, QH,3 TIMES A WEEK, ALL EVENING
     Route: 065
  24. OXYBATE [Suspect]
     Active Substance: OXYBATE
     Dosage: 1.5 GRAM, QH,3 TIMES A WEEK, ALL EVENING

REACTIONS (6)
  - Hallucination [Not Recovered/Not Resolved]
  - Drug abuse [Not Recovered/Not Resolved]
  - Delusion [Not Recovered/Not Resolved]
  - Mydriasis [Recovered/Resolved]
  - Intentional product misuse [Not Recovered/Not Resolved]
  - Suicidal ideation [Unknown]

NARRATIVE: CASE EVENT DATE: 20240908
